FAERS Safety Report 15751436 (Version 2)
Quarter: 2019Q1

REPORT INFORMATION
  Report Type: Spontaneous
  Country: US (occurrence: US)
  Receive Date: 20181221
  Receipt Date: 20190108
  Transmission Date: 20190417
  Serious: No
  Sender: FDA-Public Use
  Company Number: US-GLAXOSMITHKLINE-US2018215175

PATIENT
  Age: 54 Year
  Sex: Male

DRUGS (1)
  1. SUMATRIPTAN (SUMATRIPTAN SUCCINATE) SOLUTION FOR INJECTION IN PRE-FILL [Suspect]
     Active Substance: SUMATRIPTAN
     Indication: MIGRAINE
     Dosage: 1 DF, PRN
     Route: 058

REACTIONS (8)
  - Injection site urticaria [Unknown]
  - Accidental exposure to product [Unknown]
  - Underdose [Unknown]
  - Wrong technique in product usage process [Unknown]
  - Product complaint [Unknown]
  - Exposure via skin contact [Unknown]
  - Drug ineffective [Unknown]
  - Injection site swelling [Unknown]

NARRATIVE: CASE EVENT DATE: 20181127
